FAERS Safety Report 11219156 (Version 3)
Quarter: 2015Q3

REPORT INFORMATION
  Report Type: Spontaneous
  Country: BR (occurrence: BR)
  Receive Date: 20150625
  Receipt Date: 20150807
  Transmission Date: 20151125
  Serious: Yes (Other)
  Sender: FDA-Public Use
  Company Number: PHHY2015BR076368

PATIENT
  Age: 25 Year
  Sex: Male
  Weight: 62 kg

DRUGS (3)
  1. LEPONEX [Suspect]
     Active Substance: CLOZAPINE
     Dosage: UNK (25 MG PILL), UNK
     Route: 048
  2. LEPONEX [Suspect]
     Active Substance: CLOZAPINE
     Indication: SCHIZOPHRENIA
     Dosage: 5 DF (100 MG PILL), QD
     Route: 048
  3. LAMITOR [Concomitant]
     Active Substance: LAMOTRIGINE
     Indication: PRODUCT USED FOR UNKNOWN INDICATION
     Dosage: 150 MG, BID (IN THE MORNING AND AT NIGHT)
     Route: 065

REACTIONS (8)
  - Abnormal behaviour [Unknown]
  - Hypersomnia [Recovering/Resolving]
  - Hallucination, auditory [Unknown]
  - Inappropriate affect [Unknown]
  - Drug ineffective [Unknown]
  - Agitation [Unknown]
  - Schizophrenia [Recovering/Resolving]
  - Somnolence [Recovering/Resolving]

NARRATIVE: CASE EVENT DATE: 20150501
